FAERS Safety Report 8588553-3 (Version None)
Quarter: 2012Q3

REPORT INFORMATION
  Report Type: 
  Country: None (occurrence: None)
  Receive Date: 20120813
  Receipt Date: 20120803
  Transmission Date: 20120928
  Serious: Yes (Other)
  Sender: FDA-Public Use
  Company Number: US-ASTRAZENECA-2012SE55145

PATIENT
  Age: 69 Year
  Sex: Female
  Weight: 79.4 kg

DRUGS (3)
  1. PULMICORT FLEXHALER [Suspect]
     Dosage: 2 INHALATIONS TWO TIMES A DAY
     Route: 055
     Dates: start: 20090328
  2. STEROIDS [Concomitant]
  3. SYMBICORT [Suspect]
     Indication: EMPHYSEMA
     Dosage: 160/4.5 ?G 2 PUFFS TWO TIMES A DAY
     Route: 055

REACTIONS (4)
  - ADVERSE EVENT [None]
  - EMPHYSEMA [None]
  - RENAL FAILURE [None]
  - ORAL CANDIDIASIS [None]
